FAERS Safety Report 13470179 (Version 1)
Quarter: 2017Q2

REPORT INFORMATION
  Report Type: Spontaneous
  Country: US (occurrence: US)
  Receive Date: 20170421
  Receipt Date: 20170421
  Transmission Date: 20170830
  Serious: No
  Sender: FDA-Public Use
  Company Number: None

PATIENT
  Age: 44 Year
  Sex: Female
  Weight: 109.8 kg

DRUGS (3)
  1. CEFEPIME [Concomitant]
     Active Substance: CEFEPIME HYDROCHLORIDE
  2. VANCOMYCIN [Suspect]
     Active Substance: VANCOMYCIN
     Indication: INTERVERTEBRAL DISC DISORDER
     Route: 040
     Dates: start: 20170224, end: 20170329
  3. VANCOMYCIN [Suspect]
     Active Substance: VANCOMYCIN
     Indication: OSTEOMYELITIS
     Route: 040
     Dates: start: 20170224, end: 20170329

REACTIONS (3)
  - Rash [None]
  - Hypersensitivity [None]
  - Pruritus [None]

NARRATIVE: CASE EVENT DATE: 20170310
